FAERS Safety Report 14177236 (Version 1)
Quarter: 2017Q4

REPORT INFORMATION
  Report Type: Spontaneous
  Country: RU (occurrence: RU)
  Receive Date: 20171110
  Receipt Date: 20171110
  Transmission Date: 20180321
  Serious: Yes (Hospitalization, Other)
  Sender: FDA-Public Use
  Company Number: RU-ASTRAZENECA-2017SE96862

PATIENT
  Age: 59 Year
  Sex: Female
  Weight: 54 kg

DRUGS (12)
  1. IVABRADINE [Concomitant]
     Active Substance: IVABRADINE
  2. CRESTOR [Concomitant]
     Active Substance: ROSUVASTATIN CALCIUM
  3. NOLPASA [Concomitant]
  4. FORXIGA [Concomitant]
     Active Substance: DAPAGLIFLOZIN
  5. BISOPROLOL [Concomitant]
     Active Substance: BISOPROLOL
  6. DE NOL [Concomitant]
  7. GLUCOPHAGE LONG [Concomitant]
  8. INSULIN [Concomitant]
     Active Substance: INSULIN NOS
  9. BRILINTA [Suspect]
     Active Substance: TICAGRELOR
     Indication: ACUTE MYOCARDIAL INFARCTION
     Route: 048
     Dates: start: 201706
  10. SORBIFER DURULES [Concomitant]
     Active Substance: FERROUS SULFATE
  11. CARDIYMAGNYL [Concomitant]
     Dates: end: 20170920
  12. JANUVIA [Concomitant]
     Active Substance: SITAGLIPTIN PHOSPHATE

REACTIONS (7)
  - Gastric cancer [Not Recovered/Not Resolved]
  - Gastrointestinal polyp haemorrhage [Not Recovered/Not Resolved]
  - Off label use [Not Recovered/Not Resolved]
  - Blood pressure decreased [Not Recovered/Not Resolved]
  - Haemorrhoids [Not Recovered/Not Resolved]
  - Blood glucose increased [Not Recovered/Not Resolved]
  - Haemoglobin decreased [Not Recovered/Not Resolved]

NARRATIVE: CASE EVENT DATE: 201706
